FAERS Safety Report 9626910 (Version 1)
Quarter: 2013Q4

REPORT INFORMATION
  Report Type: Spontaneous
  Country: US (occurrence: US)
  Receive Date: 20131016
  Receipt Date: 20131016
  Transmission Date: 20140711
  Serious: Yes (Death, Other)
  Sender: FDA-Public Use
  Company Number: US-PFIZER INC-2013296373

PATIENT
  Age: 31 Year
  Sex: Male
  Weight: 99.77 kg

DRUGS (2)
  1. LYRICA [Suspect]
     Indication: SLEEP DISORDER
     Dosage: 150 MG, 1X/DAY
  2. XARELTO [Concomitant]
     Indication: DEEP VEIN THROMBOSIS
     Dosage: 20 MG, 1X/DAY

REACTIONS (2)
  - Off label use [Fatal]
  - Completed suicide [Fatal]
